FAERS Safety Report 20469739 (Version 2)
Quarter: 2022Q1

REPORT INFORMATION
  Report Type: Spontaneous
  Country: US (occurrence: US)
  Receive Date: 20220214
  Receipt Date: 20220325
  Transmission Date: 20220424
  Serious: No
  Sender: FDA-Public Use
  Company Number: US-PFIZER INC-202200223896

PATIENT
  Age: 37 Year
  Sex: Female

DRUGS (2)
  1. XELJANZ XR [Suspect]
     Active Substance: TOFACITINIB CITRATE
     Indication: Rheumatoid arthritis
     Dosage: 11 MG, 1X/DAY
     Route: 048
     Dates: start: 2019
  2. COVID-19 VACCINE NOS [Suspect]
     Active Substance: COVID-19 VACCINE NOS
     Indication: COVID-19 immunisation
     Dosage: DOSE NUMBER UNKNOWN (BOOSTER), SINGLE

REACTIONS (4)
  - Musculoskeletal stiffness [Recovered/Resolved]
  - Pain [Recovered/Resolved]
  - Alopecia [Recovered/Resolved]
  - Abdominal pain [Recovered/Resolved]
